FAERS Safety Report 12244835 (Version 2)
Quarter: 2016Q2

REPORT INFORMATION
  Report Type: Spontaneous
  Country: US (occurrence: US)
  Receive Date: 20160407
  Receipt Date: 20160530
  Transmission Date: 20160815
  Serious: No
  Sender: FDA-Public Use
  Company Number: US-ASTRAZENECA-2016SE34764

PATIENT
  Age: 44 Year
  Sex: Female
  Weight: 58.5 kg

DRUGS (3)
  1. CLARITIN [Concomitant]
     Active Substance: LORATADINE
     Indication: HYPERSENSITIVITY
  2. RHINOCORT [Suspect]
     Active Substance: BUDESONIDE
     Indication: SEASONAL ALLERGY
     Dosage: 2 SPRAYS IN EACH NOSTRIL DAILY
     Route: 045
  3. LEVOTHYROXINE. [Concomitant]
     Active Substance: LEVOTHYROXINE
     Indication: THYROID DISORDER

REACTIONS (2)
  - Drug ineffective [Unknown]
  - Nasal congestion [Not Recovered/Not Resolved]
